FAERS Safety Report 5496823-0 (Version None)
Quarter: 2007Q4

REPORT INFORMATION
  Report Type: 
  Country: None (occurrence: None)
  Receive Date: 20071025
  Receipt Date: 20070822
  Transmission Date: 20080405
  Serious: No
  Sender: FDA-Public Use
  Company Number: A0674699A

PATIENT
  Age: 83 Year
  Sex: Female

DRUGS (6)
  1. ADVAIR DISKUS 100/50 [Suspect]
     Indication: MULTIPLE ALLERGIES
     Dosage: 1PUFF AT NIGHT
     Route: 055
     Dates: start: 20050101
  2. WARFARIN SODIUM [Concomitant]
  3. DIGITEK [Concomitant]
  4. LISINOPRIL [Concomitant]
  5. CARTIA XT [Concomitant]
  6. BETAXOLOL [Concomitant]

REACTIONS (1)
  - PRURITUS [None]
